FAERS Safety Report 6536653-1 (Version None)
Quarter: 2010Q1

REPORT INFORMATION
  Report Type: 
  Country: None (occurrence: None)
  Receive Date: 20100113
  Receipt Date: 20091231
  Transmission Date: 20100710
  Serious: Yes (Hospitalization)
  Sender: FDA-Public Use
  Company Number: PHHO2009US16369

PATIENT
  Sex: Female
  Weight: 74.1 kg

DRUGS (3)
  1. RAD001 [Suspect]
     Dosage: UNK
  2. SANDOSTATIN [Suspect]
     Indication: CARCINOID TUMOUR
     Dosage: 35 MG, UNK
     Route: 030
     Dates: start: 20070430
  3. PLACEBO COMP-PLA+ [Suspect]
     Indication: CARCINOID TUMOUR
     Dosage: DOUBLE BLIND
     Route: 048
     Dates: start: 20070430

REACTIONS (2)
  - ACUTE LEUKAEMIA [None]
  - WHITE BLOOD CELL COUNT INCREASED [None]
